FAERS Safety Report 21626037 (Version 1)
Quarter: 2022Q4

REPORT INFORMATION
  Report Type: Spontaneous
  Country: US (occurrence: US)
  Receive Date: 20221122
  Receipt Date: 20221122
  Transmission Date: 20230113
  Serious: Yes (Hospitalization)
  Sender: FDA-Public Use
  Company Number: US-TERSERA THERAPEUTICS LLC-2022TRS004988

PATIENT

DRUGS (1)
  1. XERMELO [Suspect]
     Active Substance: TELOTRISTAT ETHYL
     Indication: Product used for unknown indication
     Dosage: 250 MG, TID (1 TABLET BY MOUTH 3 TIMES DAILY)
     Route: 048

REACTIONS (2)
  - Vomiting [Unknown]
  - Diarrhoea [Unknown]
